FAERS Safety Report 9292128 (Version 1)
Quarter: 2013Q2

REPORT INFORMATION
  Report Type: Spontaneous
  Country: MX (occurrence: MX)
  Receive Date: 20130516
  Receipt Date: 20130516
  Transmission Date: 20140414
  Serious: Yes (Other)
  Sender: FDA-Public Use
  Company Number: MX-AMGEN-MEXSP2013032368

PATIENT
  Age: 69 Year
  Sex: Male

DRUGS (2)
  1. NEULASTIM [Suspect]
     Indication: LYMPHOMA
     Dosage: 6 MG, UNK
     Route: 058
     Dates: start: 20130325
  2. NEULASTIM [Suspect]
     Indication: NEUTROPENIA

REACTIONS (2)
  - Leukopenia [Unknown]
  - Drug ineffective [Unknown]
